FAERS Safety Report 15779114 (Version 16)
Quarter: 2022Q3

REPORT INFORMATION
  Report Type: Spontaneous
  Country: None (occurrence: FR)
  Receive Date: 20190101
  Receipt Date: 20220912
  Transmission Date: 20221027
  Serious: Yes (Life-Threatening, Hospitalization, Disabling, Other)
  Sender: FDA-Public Use
  Company Number: FR-ASCEND THERAPEUTICS-2060731

PATIENT
  Age: 28 Year
  Sex: Female

DRUGS (37)
  1. ESTROGEL [Suspect]
     Active Substance: ESTRADIOL
     Indication: Product used for unknown indication
     Dates: start: 20070528, end: 2009
  2. ESTROGEL [Suspect]
     Active Substance: ESTRADIOL
  3. CYPROTERONE ACETATE [Suspect]
     Active Substance: CYPROTERONE ACETATE
     Route: 048
     Dates: start: 20070525, end: 2009
  4. CYPROTERONE ACETATE [Suspect]
     Active Substance: CYPROTERONE ACETATE
     Route: 048
     Dates: start: 2008
  5. CYPROTERONE ACETATE [Suspect]
     Active Substance: CYPROTERONE ACETATE
     Route: 048
     Dates: start: 20090705, end: 20100820
  6. CYPROTERONE ACETATE [Suspect]
     Active Substance: CYPROTERONE ACETATE
     Route: 048
     Dates: start: 20090715
  7. CYPROTERONE ACETATE [Suspect]
     Active Substance: CYPROTERONE ACETATE
     Route: 048
     Dates: start: 20100820
  8. CYPROTERONE ACETATE [Suspect]
     Active Substance: CYPROTERONE ACETATE
     Route: 048
     Dates: start: 20101221, end: 20110705
  9. ESTRADIOL [Suspect]
     Active Substance: ESTRADIOL
     Route: 048
     Dates: start: 2008, end: 20170920
  10. ESTRADIOL [Suspect]
     Active Substance: ESTRADIOL
     Route: 048
     Dates: start: 20090705, end: 20170920
  11. CYPROTERONE ACETATE [Suspect]
     Active Substance: CYPROTERONE ACETATE
     Route: 048
     Dates: start: 20110705, end: 20110830
  12. CYPROTERONE ACETATE [Suspect]
     Active Substance: CYPROTERONE ACETATE
     Route: 048
     Dates: start: 20110830
  13. CYPROTERONE ACETATE [Suspect]
     Active Substance: CYPROTERONE ACETATE
     Route: 048
     Dates: end: 20130816
  14. CYPROTERONE ACETATE [Suspect]
     Active Substance: CYPROTERONE ACETATE
     Route: 048
     Dates: start: 20130816, end: 20140818
  15. CYPROTERONE ACETATE [Suspect]
     Active Substance: CYPROTERONE ACETATE
     Route: 048
     Dates: start: 20140818, end: 20170510
  16. CYPROTERONE ACETATE\ETHINYL ESTRADIOL [Suspect]
     Active Substance: CYPROTERONE ACETATE\ETHINYL ESTRADIOL
     Dates: start: 20161124
  17. CYPROTERONE ACETATE\ETHINYL ESTRADIOL [Suspect]
     Active Substance: CYPROTERONE ACETATE\ETHINYL ESTRADIOL
     Dates: start: 1997
  18. ESTRADIOL [Concomitant]
     Active Substance: ESTRADIOL
     Dates: start: 2008, end: 20170920
  19. ESTRADIOL [Suspect]
     Active Substance: ESTRADIOL
     Route: 048
  20. CYPROTERONE ACETATE [Suspect]
     Active Substance: CYPROTERONE ACETATE
     Route: 048
     Dates: start: 20161124
  21. CYPROTERONE ACETATE [Suspect]
     Active Substance: CYPROTERONE ACETATE
     Route: 048
     Dates: start: 20170510, end: 20170920
  22. CYPROTERONE ACETATE [Suspect]
     Active Substance: CYPROTERONE ACETATE
     Route: 048
     Dates: start: 20110705, end: 20110830
  23. ESTRADIOL [Concomitant]
     Active Substance: ESTRADIOL
     Dates: start: 2008, end: 20170920
  24. ESTRADIOL [Concomitant]
     Active Substance: ESTRADIOL
     Dates: start: 200907
  25. ESTRADIOL [Concomitant]
     Active Substance: ESTRADIOL
     Dates: start: 201312
  26. CYPROTERONE ACETATE [Suspect]
     Active Substance: CYPROTERONE ACETATE
     Route: 048
     Dates: start: 20100820, end: 201307
  27. CYPROTERONE ACETATE [Suspect]
     Active Substance: CYPROTERONE ACETATE
     Route: 048
     Dates: start: 20101221, end: 20110705
  28. CYPROTERONE ACETATE [Suspect]
     Active Substance: CYPROTERONE ACETATE
     Route: 048
     Dates: start: 20090705, end: 20100820
  29. CYPROTERONE ACETATE [Suspect]
     Active Substance: CYPROTERONE ACETATE
     Route: 048
     Dates: start: 20140818, end: 20170510
  30. CYPROTERONE ACETATE [Suspect]
     Active Substance: CYPROTERONE ACETATE
     Route: 048
     Dates: end: 20130816
  31. CYPROTERONE ACETATE [Suspect]
     Active Substance: CYPROTERONE ACETATE
     Route: 048
     Dates: start: 20070528, end: 2009
  32. CYPROTERONE ACETATE [Suspect]
     Active Substance: CYPROTERONE ACETATE
     Route: 048
     Dates: start: 20170510, end: 20170920
  33. CYPROTERONE ACETATE [Suspect]
     Active Substance: CYPROTERONE ACETATE
     Route: 048
     Dates: start: 20161124
  34. CYPROTERONE ACETATE [Suspect]
     Active Substance: CYPROTERONE ACETATE
     Route: 048
     Dates: start: 20100715
  35. CYPROTERONE ACETATE [Suspect]
     Active Substance: CYPROTERONE ACETATE
     Route: 048
     Dates: start: 20110830
  36. CYPROTERONE ACETATE [Suspect]
     Active Substance: CYPROTERONE ACETATE
     Route: 048
     Dates: start: 20130816, end: 20140818
  37. ESTRADIOL [Concomitant]
     Active Substance: ESTRADIOL
     Dates: start: 2007

REACTIONS (80)
  - Hemiplegia [Unknown]
  - Hemiplegia [Unknown]
  - Nervous system disorder [Unknown]
  - Nervous system disorder [Unknown]
  - Hemiparaesthesia [Unknown]
  - Hemiparaesthesia [Unknown]
  - Cognitive disorder [Recovered/Resolved with Sequelae]
  - Cognitive disorder [Recovered/Resolved with Sequelae]
  - Muscular weakness [Not Recovered/Not Resolved]
  - Muscular weakness [Not Recovered/Not Resolved]
  - Meningioma [Not Recovered/Not Resolved]
  - Language disorder [Unknown]
  - Eye haematoma [Unknown]
  - Disorientation [Unknown]
  - Coordination abnormal [Not Recovered/Not Resolved]
  - Coordination abnormal [Not Recovered/Not Resolved]
  - Gait disturbance [Not Recovered/Not Resolved]
  - Gait disturbance [Not Recovered/Not Resolved]
  - Paraesthesia [Recovered/Resolved with Sequelae]
  - Paraesthesia [Recovered/Resolved with Sequelae]
  - Diplopia [Not Recovered/Not Resolved]
  - Dysarthria [Not Recovered/Not Resolved]
  - Balance disorder [Not Recovered/Not Resolved]
  - Hemiplegia [Not Recovered/Not Resolved]
  - Hemiplegia [Not Recovered/Not Resolved]
  - Fatigue [Unknown]
  - Weight increased [Not Recovered/Not Resolved]
  - Weight increased [Not Recovered/Not Resolved]
  - Muscular weakness [Not Recovered/Not Resolved]
  - Muscular weakness [Not Recovered/Not Resolved]
  - Aphasia [Unknown]
  - Memory impairment [Unknown]
  - Facial paralysis [Unknown]
  - Eye haematoma [Unknown]
  - Hemiparesis [Unknown]
  - Hypoaesthesia [Unknown]
  - Hypoaesthesia [Unknown]
  - Muscular weakness [Not Recovered/Not Resolved]
  - Aphasia [Unknown]
  - Memory impairment [Recovered/Resolved with Sequelae]
  - Disturbance in attention [Recovered/Resolved with Sequelae]
  - Disturbance in attention [Recovered/Resolved with Sequelae]
  - Balance disorder [Recovered/Resolved with Sequelae]
  - Balance disorder [Recovered/Resolved with Sequelae]
  - Mobility decreased [Recovered/Resolved with Sequelae]
  - Formication [Recovered/Resolved with Sequelae]
  - Joint range of motion decreased [Recovered/Resolved with Sequelae]
  - Paraesthesia [Recovered/Resolved with Sequelae]
  - Language disorder [Recovered/Resolved with Sequelae]
  - Language disorder [Recovered/Resolved with Sequelae]
  - Brain herniation [Unknown]
  - Executive dysfunction [Recovered/Resolved with Sequelae]
  - Asthenia [Recovered/Resolved with Sequelae]
  - Fatigue [Recovered/Resolved with Sequelae]
  - Partial seizures [Unknown]
  - Partial seizures [Unknown]
  - Clumsiness [Unknown]
  - Visual impairment [Unknown]
  - Speech disorder [Recovered/Resolved with Sequelae]
  - Disturbance in attention [Unknown]
  - Loss of personal independence in daily activities [Unknown]
  - Loss of personal independence in daily activities [Unknown]
  - Neck pain [Unknown]
  - Neck pain [Unknown]
  - Cerebral mass effect [Unknown]
  - Intracranial mass [Unknown]
  - Pain [Unknown]
  - Headache [Unknown]
  - Off label use [None]
  - Product use in unapproved indication [None]
  - Product use in unapproved indication [None]
  - Product dose omission issue [None]
  - Product dose omission issue [None]
  - Dyskinesia [Unknown]
  - Dyskinesia [Unknown]
  - Visual impairment [Unknown]
  - Hemiparaesthesia [Unknown]
  - Hemiparaesthesia [Unknown]
  - Magnetic resonance imaging head abnormal [Unknown]
  - Facial paralysis [Not Recovered/Not Resolved]

NARRATIVE: CASE EVENT DATE: 20170101
